FAERS Safety Report 6405530-9 (Version None)
Quarter: 2009Q4

REPORT INFORMATION
  Report Type: 
  Country: None (occurrence: None)
  Receive Date: 20091019
  Receipt Date: 20090914
  Transmission Date: 20100525
  Serious: No
  Sender: FDA-Public Use
  Company Number: US-BAYER-200933570NA

PATIENT
  Sex: Female

DRUGS (1)
  1. MIRENA [Suspect]
     Indication: VAGINAL HAEMORRHAGE
     Dosage: CONTINUOUS
     Route: 015

REACTIONS (1)
  - VULVOVAGINAL PRURITUS [None]
